FAERS Safety Report 9861041 (Version 1)
Quarter: 2014Q1

REPORT INFORMATION
  Report Type: Spontaneous
  Country: US (occurrence: None)
  Receive Date: 20140131
  Receipt Date: 20140131
  Transmission Date: 20141002
  Serious: Yes (Other)
  Sender: FDA-Public Use
  Company Number: None

PATIENT
  Age: 53 Year
  Sex: Male
  Weight: 95.26 kg

DRUGS (1)
  1. MORPHINE SULFATE [Suspect]
     Indication: BACK PAIN
     Dosage: 1-3 DAILY 1-2AM WHEN WAKING TAKEN BY MOUTH
     Route: 048
     Dates: start: 20140120, end: 20140126

REACTIONS (2)
  - Insomnia [None]
  - Drug ineffective [None]
